FAERS Safety Report 7623392-9 (Version None)
Quarter: 2011Q3

REPORT INFORMATION
  Report Type: 
  Country: None (occurrence: None)
  Receive Date: 20110719
  Receipt Date: 20110719
  Transmission Date: 20111222
  Serious: Yes (Hospitalization)
  Sender: FDA-Public Use
  Company Number: None

PATIENT
  Age: 82 Year
  Sex: Female
  Weight: 70.7611 kg

DRUGS (1)
  1. PRADAXA [Suspect]
     Indication: THROMBOSIS PROPHYLAXIS
     Dosage: 150 MG 1-2 TIMES
     Dates: start: 20110523

REACTIONS (4)
  - HYPOPNOEA [None]
  - HEADACHE [None]
  - WEIGHT INCREASED [None]
  - OEDEMA PERIPHERAL [None]
